FAERS Safety Report 21708836 (Version 4)
Quarter: 2023Q4

REPORT INFORMATION
  Report Type: Report from Study
  Country: US (occurrence: US)
  Receive Date: 20221210
  Receipt Date: 20231125
  Transmission Date: 20240110
  Serious: Yes (Hospitalization)
  Sender: FDA-Public Use
  Company Number: US-002147023-NVSC2022US284946

PATIENT
  Age: 75 Year
  Sex: Female

DRUGS (2)
  1. LEQVIO [Suspect]
     Active Substance: INCLISIRAN SODIUM
     Indication: Product used for unknown indication
     Dosage: UNK
     Route: 058
     Dates: start: 20221205
  2. LEQVIO [Suspect]
     Active Substance: INCLISIRAN SODIUM
     Dosage: 3RD INJECTION ON 9/6
     Route: 065

REACTIONS (3)
  - Ureteric stenosis [Unknown]
  - Urinary retention [Unknown]
  - Memory impairment [Unknown]

NARRATIVE: CASE EVENT DATE: 20221205
